FAERS Safety Report 6052944-5 (Version None)
Quarter: 2009Q1

REPORT INFORMATION
  Report Type: 
  Country: None (occurrence: None)
  Receive Date: 20090122
  Receipt Date: 20090115
  Transmission Date: 20090719
  Serious: Yes (Death)
  Sender: FDA-Public Use
  Company Number: SPV1-2008-01864

PATIENT
  Age: 15 Year
  Sex: Male

DRUGS (1)
  1. ADDERALL 10 [Suspect]
     Dosage: ORAL
     Route: 048

REACTIONS (7)
  - CONSCIOUSNESS FLUCTUATING [None]
  - FALL [None]
  - HEART RATE INCREASED [None]
  - HEAT STROKE [None]
  - HYPERHIDROSIS [None]
  - RESPIRATION ABNORMAL [None]
  - UNRESPONSIVE TO STIMULI [None]
